FAERS Safety Report 8370446-8 (Version None)
Quarter: 2012Q2

REPORT INFORMATION
  Report Type: 
  Country: None (occurrence: None)
  Receive Date: 20120518
  Receipt Date: 20120509
  Transmission Date: 20120825
  Serious: Yes (Other)
  Sender: FDA-Public Use
  Company Number: US-VERTEX PHARMACEUTICALS INC.-AE-2012-005231

PATIENT
  Sex: Female
  Weight: 74.002 kg

DRUGS (8)
  1. KEPPRA [Concomitant]
     Indication: CONVULSION
  2. RANITIDINE [Concomitant]
     Indication: GASTROOESOPHAGEAL REFLUX DISEASE
     Route: 048
  3. RIBAVIRIN [Concomitant]
     Indication: HEPATITIS C
     Route: 048
     Dates: start: 20120405, end: 20120504
  4. CLONAZEPAM [Concomitant]
  5. PEGASYS [Concomitant]
     Indication: HEPATITIS C
     Route: 058
     Dates: start: 20120405
  6. INCIVEK [Suspect]
     Indication: HEPATITIS C
     Route: 048
     Dates: start: 20120405, end: 20120409
  7. ZOFRAN [Concomitant]
     Indication: NAUSEA
     Route: 048
  8. ZOFRAN [Concomitant]
     Indication: VOMITING

REACTIONS (6)
  - CANDIDIASIS [None]
  - ANORECTAL DISCOMFORT [None]
  - STEVENS-JOHNSON SYNDROME [None]
  - DIARRHOEA [None]
  - MIGRAINE [None]
  - PROCTALGIA [None]
